FAERS Safety Report 7982025-2 (Version None)
Quarter: 2011Q4

REPORT INFORMATION
  Report Type: 
  Country: None (occurrence: None)
  Receive Date: 20111213
  Receipt Date: 20111129
  Transmission Date: 20120403
  Serious: Yes (Life-Threatening, Hospitalization)
  Sender: FDA-Public Use
  Company Number: SAN_00002_2011

PATIENT
  Age: 51 Year
  Sex: Male

DRUGS (3)
  1. METFORMIN HCL [Suspect]
     Indication: OFF LABEL USE
     Dosage: (DF, EVERY SIX HOURS)
  2. METFORMIN HCL [Suspect]
     Indication: PAIN
     Dosage: (DF, EVERY SIX HOURS)
  3. OXYCODONE / ACETAMINOPHEN (UNKNOWN) [Concomitant]

REACTIONS (10)
  - DYSPNOEA [None]
  - BLOOD CREATININE INCREASED [None]
  - BLOOD GLUCOSE DECREASED [None]
  - BLOOD PRESSURE DECREASED [None]
  - ACIDOSIS [None]
  - ACCIDENTAL OVERDOSE [None]
  - UNRESPONSIVE TO STIMULI [None]
  - WRONG DRUG ADMINISTERED [None]
  - DRUG LEVEL INCREASED [None]
  - INAPPROPRIATE SCHEDULE OF DRUG ADMINISTRATION [None]
